FAERS Safety Report 16770543 (Version 1)
Quarter: 2019Q3

REPORT INFORMATION
  Report Type: Report from Study
  Country: US (occurrence: US)
  Receive Date: 20190904
  Receipt Date: 20190904
  Transmission Date: 20191005
  Serious: Yes (Death, Other)
  Sender: FDA-Public Use
  Company Number: US-VISTAPHARM, INC.-VER201908-000895

PATIENT

DRUGS (2)
  1. PREDNISOLONE. [Suspect]
     Active Substance: PREDNISOLONE
     Indication: INFANTILE SPASMS
     Dosage: 40 TO 45 MG/DAY (APPROXIMATELY 4 MG/KG/DAY FOR A 10 KG CHILD)
     Route: 048
  2. PREDNISOLONE. [Suspect]
     Active Substance: PREDNISOLONE
     Dosage: 15 MG/5 ML
     Route: 048

REACTIONS (2)
  - Product use in unapproved indication [Unknown]
  - Necrotising colitis [Fatal]
